FAERS Safety Report 9286947 (Version 6)
Quarter: 2013Q2

REPORT INFORMATION
  Report Type: Spontaneous
  Country: GB (occurrence: None)
  Receive Date: 20130509
  Receipt Date: 20130607
  Transmission Date: 20140414
  Serious: Yes (Hospitalization, Other)
  Sender: FDA-Public Use
  Company Number: GER/UKI/13/0029456

PATIENT
  Age: 66 Year
  Sex: Male

DRUGS (7)
  1. CIPROFLOXACIN [Suspect]
     Indication: INFECTION
     Dosage: 500 MG, 2 IN  1 D
     Dates: start: 20130216, end: 20130307
  2. CIPROFLOXACIN [Suspect]
     Indication: SEPSIS
     Dosage: 500 MG, 2 IN  1 D
     Dates: start: 20130216, end: 20130307
  3. ATENOLOL (ATENOLOL) [Concomitant]
  4. CO-CODAMOL [Concomitant]
  5. LORATIDINE [Concomitant]
  6. ONE-ALPHA (ALFACALCIDOL) [Concomitant]
  7. SODIUM BICARBONATE (SODIUM BICARBONATE) [Concomitant]

REACTIONS (17)
  - Balance disorder [None]
  - Headache [None]
  - Deafness unilateral [None]
  - Vasculitis [None]
  - Photosensitivity reaction [None]
  - Tinnitus [None]
  - Toxicity to various agents [None]
  - Photophobia [None]
  - Dizziness postural [None]
  - Hearing impaired [None]
  - Gait disturbance [None]
  - Incorrect dose administered [None]
  - Drug prescribing error [None]
  - Contraindication to medical treatment [None]
  - Fall [None]
  - Incorrect dose administered [None]
  - Toxicity to various agents [None]
